FAERS Safety Report 7584862-5 (Version None)
Quarter: 2011Q2

REPORT INFORMATION
  Report Type: 
  Country: None (occurrence: None)
  Receive Date: 20110630
  Receipt Date: 20110624
  Transmission Date: 20111010
  Serious: Yes (Other)
  Sender: FDA-Public Use
  Company Number: PHHY2011BR56612

PATIENT
  Sex: Female

DRUGS (2)
  1. FORMOTEROL FUMARATE [Suspect]
     Indication: BRONCHITIS
     Dosage: 2 DF, DAILY
  2. FORMOTEROL FUMARATE [Suspect]
     Dosage: 2 DF DAILY

REACTIONS (9)
  - INSOMNIA [None]
  - TINNITUS [None]
  - DIZZINESS [None]
  - SYNCOPE [None]
  - HAEMATOMA [None]
  - FALL [None]
  - COUGH [None]
  - DEAFNESS [None]
  - DYSPHONIA [None]
